FAERS Safety Report 20299859 (Version 1)
Quarter: 2022Q1

REPORT INFORMATION
  Report Type: Spontaneous
  Country: FR (occurrence: FR)
  Receive Date: 20220105
  Receipt Date: 20220105
  Transmission Date: 20220423
  Serious: Yes (Hospitalization)
  Sender: FDA-Public Use
  Company Number: None

PATIENT
  Age: 76 Year
  Sex: Male
  Weight: 74.5 kg

DRUGS (4)
  1. KEYTRUDA [Suspect]
     Active Substance: PEMBROLIZUMAB
     Indication: Clear cell renal cell carcinoma
     Dosage: 200 MILLIGRAM, Q3W, 25 MG/ML
     Route: 041
     Dates: start: 20210917, end: 20211029
  2. INLYTA [Suspect]
     Active Substance: AXITINIB
     Indication: Clear cell renal cell carcinoma
     Dosage: 5 MILLIGRAM, Q12H
     Route: 048
     Dates: start: 20210917, end: 20211124
  3. ISRADIPINE [Concomitant]
     Active Substance: ISRADIPINE
     Indication: Hypertension
     Dosage: 5 MILLIGRAM, QD, PROLONGED-RELEASE CAPSULE
     Route: 048
  4. RILMENIDINE [Concomitant]
     Active Substance: RILMENIDINE
     Indication: Hypertension
     Dosage: 1 MILLIGRAM, QD
     Route: 048

REACTIONS (1)
  - Hepatitis cholestatic [Recovering/Resolving]

NARRATIVE: CASE EVENT DATE: 20211124
